FAERS Safety Report 17236597 (Version 1)
Quarter: 2020Q1

REPORT INFORMATION
  Report Type: Spontaneous
  Country: DE (occurrence: DE)
  Receive Date: 20200106
  Receipt Date: 20200106
  Transmission Date: 20200409
  Serious: Yes (Other)
  Sender: FDA-Public Use
  Company Number: DE-ELI_LILLY_AND_COMPANY-DE202001000157

PATIENT
  Age: 64 Year
  Sex: Male

DRUGS (25)
  1. LEVETIRACETAM. [Suspect]
     Active Substance: LEVETIRACETAM
     Indication: AURA
     Dosage: 3000 MG, DAILY
     Route: 065
  2. LAMOTRIGINE. [Suspect]
     Active Substance: LAMOTRIGINE
     Indication: AUTOMATISM EPILEPTIC
  3. ZONISAMIDE. [Suspect]
     Active Substance: ZONISAMIDE
     Indication: AUTOMATISM EPILEPTIC
  4. GABAPENTIN. [Suspect]
     Active Substance: GABAPENTIN
     Indication: AUTOMATISM EPILEPTIC
  5. PRIMIDONE. [Suspect]
     Active Substance: PRIMIDONE
     Indication: AUTOMATISM EPILEPTIC
  6. OXCARBAZEPINE. [Suspect]
     Active Substance: OXCARBAZEPINE
     Indication: AURA
     Dosage: UNK, UNKNOWN
     Route: 065
  7. ZONISAMIDE. [Suspect]
     Active Substance: ZONISAMIDE
     Indication: GENERALISED TONIC-CLONIC SEIZURE
  8. VALPROATE [Suspect]
     Active Substance: VALPROIC ACID
     Indication: GENERALISED TONIC-CLONIC SEIZURE
  9. GABAPENTIN. [Suspect]
     Active Substance: GABAPENTIN
     Indication: AURA
  10. PRIMIDONE. [Suspect]
     Active Substance: PRIMIDONE
     Indication: GENERALISED TONIC-CLONIC SEIZURE
  11. LACOSAMIDE. [Suspect]
     Active Substance: LACOSAMIDE
     Indication: GENERALISED TONIC-CLONIC SEIZURE
  12. LEVETIRACETAM. [Suspect]
     Active Substance: LEVETIRACETAM
     Indication: GENERALISED TONIC-CLONIC SEIZURE
  13. OLANZAPINE. [Suspect]
     Active Substance: OLANZAPINE
     Indication: PRODUCT USED FOR UNKNOWN INDICATION
     Dosage: UNK UNK, UNKNOWN
     Route: 065
  14. PRIMIDONE. [Suspect]
     Active Substance: PRIMIDONE
     Indication: AURA
     Dosage: UNK, UNKNOWN
     Route: 065
  15. LACOSAMIDE. [Suspect]
     Active Substance: LACOSAMIDE
     Indication: AUTOMATISM EPILEPTIC
  16. VALPROATE [Suspect]
     Active Substance: VALPROIC ACID
     Indication: AURA
  17. LAMOTRIGINE. [Suspect]
     Active Substance: LAMOTRIGINE
     Indication: AURA
  18. OXCARBAZEPINE. [Suspect]
     Active Substance: OXCARBAZEPINE
     Indication: AUTOMATISM EPILEPTIC
  19. LACOSAMIDE. [Suspect]
     Active Substance: LACOSAMIDE
     Indication: AURA
     Dosage: UNK, UNKNOWN
     Route: 065
  20. VALPROATE [Suspect]
     Active Substance: VALPROIC ACID
     Indication: AUTOMATISM EPILEPTIC
     Dosage: UNK UNK, UNKNOWN
     Route: 065
  21. GABAPENTIN. [Suspect]
     Active Substance: GABAPENTIN
     Indication: GENERALISED TONIC-CLONIC SEIZURE
     Dosage: UNK UNK, UNKNOWN
     Route: 065
  22. OXCARBAZEPINE. [Suspect]
     Active Substance: OXCARBAZEPINE
     Indication: GENERALISED TONIC-CLONIC SEIZURE
  23. LEVETIRACETAM. [Suspect]
     Active Substance: LEVETIRACETAM
     Indication: AUTOMATISM EPILEPTIC
  24. ZONISAMIDE. [Suspect]
     Active Substance: ZONISAMIDE
     Indication: AURA
     Dosage: UNK, UNKNOWN
     Route: 065
  25. LAMOTRIGINE. [Suspect]
     Active Substance: LAMOTRIGINE
     Indication: GENERALISED TONIC-CLONIC SEIZURE
     Dosage: 900 MG, DAILY
     Route: 065

REACTIONS (3)
  - Depressive symptom [Recovered/Resolved]
  - Psychotic symptom [Recovered/Resolved]
  - Delusion [Recovered/Resolved]
